FAERS Safety Report 7916995-5 (Version None)
Quarter: 2011Q4

REPORT INFORMATION
  Report Type: 
  Country: None (occurrence: None)
  Receive Date: 20111116
  Receipt Date: 20111116
  Transmission Date: 20120403
  Serious: Yes (Other)
  Sender: FDA-Public Use
  Company Number: None

PATIENT
  Age: 52 Year
  Sex: Female
  Weight: 65.77 kg

DRUGS (1)
  1. CYMBALTA [Suspect]
     Indication: ANXIETY
     Dosage: 1 CAPSULE
     Route: 048
     Dates: start: 20101201, end: 20111110

REACTIONS (8)
  - HEADACHE [None]
  - PARAESTHESIA [None]
  - COLD SWEAT [None]
  - DISORIENTATION [None]
  - FEELING HOT [None]
  - WITHDRAWAL SYNDROME [None]
  - PAIN [None]
  - FEELING ABNORMAL [None]
